FAERS Safety Report 18236631 (Version 15)
Quarter: 2022Q4

REPORT INFORMATION
  Report Type: Report from Study
  Country: US (occurrence: US)
  Receive Date: 20200907
  Receipt Date: 20221208
  Transmission Date: 20230112
  Serious: Yes (Hospitalization, Other)
  Sender: FDA-Public Use
  Company Number: US-SHIRE-US202028904

PATIENT
  Age: 24 Year
  Sex: Female
  Weight: 134 kg

DRUGS (29)
  1. HUMAN IMMUNOGLOBULIN G\HYALURONIDASE RECOMBINANT HUMAN [Suspect]
     Active Substance: HUMAN IMMUNOGLOBULIN G\HYALURONIDASE RECOMBINANT HUMAN
     Indication: Hypogammaglobulinaemia
     Dosage: 60 GRAM, Q4WEEKS
     Route: 058
     Dates: start: 20170120
  2. HUMAN IMMUNOGLOBULIN G\HYALURONIDASE RECOMBINANT HUMAN [Suspect]
     Active Substance: HUMAN IMMUNOGLOBULIN G\HYALURONIDASE RECOMBINANT HUMAN
     Indication: Hypogammaglobulinaemia
     Dosage: 60 GRAM, Q4WEEKS
     Route: 058
     Dates: start: 20170120
  3. ACETAMINOPHEN [Concomitant]
     Active Substance: ACETAMINOPHEN
     Dosage: UNK
     Route: 065
  4. DIPHENHYDRAMINE [Concomitant]
     Active Substance: DIPHENHYDRAMINE
     Dosage: UNK
     Route: 065
  5. LIDOCAINE [Concomitant]
     Active Substance: LIDOCAINE
     Dosage: UNK
     Route: 065
  6. SODIUM CHLORIDE [Concomitant]
     Active Substance: SODIUM CHLORIDE
     Dosage: UNK
     Route: 065
  7. SODIUM CHLORIDE [Concomitant]
     Active Substance: SODIUM CHLORIDE
     Dosage: UNK
     Route: 065
  8. EPINEPHRINE [Concomitant]
     Active Substance: EPINEPHRINE
     Dosage: UNK
     Route: 065
  9. AMITRIPTYLINE [Concomitant]
     Active Substance: AMITRIPTYLINE
     Dosage: UNK
     Route: 065
  10. VRAYLAR [Concomitant]
     Active Substance: CARIPRAZINE
     Dosage: UNK
     Route: 065
  11. LATUDA [Concomitant]
     Active Substance: LURASIDONE HYDROCHLORIDE
     Dosage: UNK
     Route: 065
  12. VISTARIL [Concomitant]
     Active Substance: HYDROXYZINE PAMOATE
     Dosage: UNK
     Route: 065
  13. DEPAKOTE [Concomitant]
     Active Substance: DIVALPROEX SODIUM
     Dosage: UNK
     Route: 065
  14. RIBOFLAVIN [Concomitant]
     Active Substance: RIBOFLAVIN
     Dosage: UNK
     Route: 065
  15. PYRIDOXINE [Concomitant]
     Active Substance: PYRIDOXINE
     Dosage: UNK
     Route: 065
  16. TOPAMAX [Concomitant]
     Active Substance: TOPIRAMATE
     Dosage: UNK
     Route: 065
  17. KEFLEX [Concomitant]
     Active Substance: CEPHALEXIN
     Dosage: UNK
     Route: 065
  18. ABILIFY [Concomitant]
     Active Substance: ARIPIPRAZOLE
     Dosage: UNK
     Route: 065
  19. HEPARIN [Concomitant]
     Active Substance: HEPARIN SODIUM
     Dosage: UNK
     Route: 065
  20. NEURONTIN [Concomitant]
     Active Substance: GABAPENTIN
     Dosage: UNK
     Route: 065
  21. KLONOPIN [Concomitant]
     Active Substance: CLONAZEPAM
     Dosage: UNK
     Route: 065
  22. JANUVIA [Concomitant]
     Active Substance: SITAGLIPTIN PHOSPHATE
     Dosage: UNK
     Route: 065
  23. VITAMIN B COMPLEX [Concomitant]
     Active Substance: CYANOCOBALAMIN\DEXPANTHENOL\NIACINAMIDE\PYRIDOXINE HYDROCHLORIDE\RIBOFLAVIN 5^-PHOSPHATE SODIUM\THIA
     Dosage: UNK
     Route: 065
  24. VITAMIN B [Concomitant]
     Active Substance: VITAMIN B
     Route: 065
  25. TRILEPTAL [Concomitant]
     Active Substance: OXCARBAZEPINE
     Route: 065
  26. AMANTADINE [Concomitant]
     Active Substance: AMANTADINE
     Route: 065
  27. TRAZODONE [Concomitant]
     Active Substance: TRAZODONE HYDROCHLORIDE
     Route: 065
  28. HYDROXYZINE HYDROCHLORIDE [Concomitant]
     Active Substance: HYDROXYZINE HYDROCHLORIDE
     Route: 065
  29. MELATONIN [Concomitant]
     Active Substance: MELATONIN
     Route: 065

REACTIONS (17)
  - Sexual abuse [Unknown]
  - Postoperative wound infection [Unknown]
  - Lymphadenitis [Unknown]
  - Ear infection [Recovered/Resolved]
  - Peripheral swelling [Unknown]
  - Urinary tract infection [Recovered/Resolved]
  - Sinusitis [Recovered/Resolved]
  - Middle ear effusion [Unknown]
  - Upper respiratory tract infection [Unknown]
  - Anal infection [Unknown]
  - Illness [Unknown]
  - Bacterial infection [Unknown]
  - Skin laceration [Unknown]
  - COVID-19 [Unknown]
  - Gallbladder disorder [Unknown]
  - Product dose omission issue [Unknown]
  - Inappropriate schedule of product administration [Unknown]

NARRATIVE: CASE EVENT DATE: 20220503
